FAERS Safety Report 6746057-4 (Version None)
Quarter: 2010Q2

REPORT INFORMATION
  Report Type: 
  Country: None (occurrence: None)
  Receive Date: 20100528
  Receipt Date: 20100519
  Transmission Date: 20101027
  Serious: Yes (Hospitalization, Other)
  Sender: FDA-Public Use
  Company Number: US-SANOFI-AVENTIS-2010SA029161

PATIENT
  Sex: Male

DRUGS (5)
  1. MULTAQ [Suspect]
     Indication: ATRIAL FIBRILLATION
     Route: 065
  2. VERAPAMIL [Concomitant]
  3. MICARDIS [Concomitant]
  4. ALLOPURINOL [Concomitant]
  5. COUMADIN [Concomitant]

REACTIONS (3)
  - ABDOMINAL PAIN [None]
  - CHEST PAIN [None]
  - MYOCARDIAL INFARCTION [None]
